FAERS Safety Report 14694402 (Version 1)
Quarter: 2018Q1

REPORT INFORMATION
  Report Type: Spontaneous
  Country: US (occurrence: US)
  Receive Date: 20180329
  Receipt Date: 20180329
  Transmission Date: 20180509
  Serious: Yes (Hospitalization, Other)
  Sender: FDA-Public Use
  Company Number: US-DRREDDYS-USA/USA/18/0097167

PATIENT
  Age: 71 Year
  Sex: Male

DRUGS (1)
  1. DOXORUBICIN HYDROCHLORIDE LIPOSOME INJECTION 20 MG/10 ML (2 MG/ML) AND [Suspect]
     Active Substance: DOXORUBICIN HYDROCHLORIDE
     Indication: HEPATOCELLULAR CARCINOMA
     Route: 065

REACTIONS (5)
  - Pneumonia [Unknown]
  - Lung consolidation [Unknown]
  - Weight decreased [Unknown]
  - Biliary-bronchial fistula [Recovered/Resolved]
  - Fatigue [Unknown]
